FAERS Safety Report 4503534-4 (Version None)
Quarter: 2004Q4

REPORT INFORMATION
  Report Type: 
  Country: None (occurrence: None)
  Receive Date: 20041115
  Receipt Date: 20041104
  Transmission Date: 20050328
  Serious: Yes (Other)
  Sender: FDA-Public Use
  Company Number: A-CH2004-07444

PATIENT
  Age: 75 Year
  Sex: Female
  Weight: 64.9 kg

DRUGS (8)
  1. TRACLEER [Suspect]
     Indication: PULMONARY HYPERTENSION
     Dosage: 62.5 MG, BID, ORAL; 125 MG, BID, ORAL; 250 MG, BID, ORAL; 125 MG,  BID, ORAL
     Route: 048
     Dates: start: 20030213, end: 20030312
  2. TRACLEER [Suspect]
     Indication: PULMONARY HYPERTENSION
     Dosage: 62.5 MG, BID, ORAL; 125 MG, BID, ORAL; 250 MG, BID, ORAL; 125 MG,  BID, ORAL
     Route: 048
     Dates: start: 20030313, end: 20040314
  3. TRACLEER [Suspect]
     Indication: PULMONARY HYPERTENSION
     Dosage: 62.5 MG, BID, ORAL; 125 MG, BID, ORAL; 250 MG, BID, ORAL; 125 MG,  BID, ORAL
     Route: 048
     Dates: start: 20040315, end: 20040906
  4. TRACLEER [Suspect]
     Indication: PULMONARY HYPERTENSION
     Dosage: 62.5 MG, BID, ORAL; 125 MG, BID, ORAL; 250 MG, BID, ORAL; 125 MG,  BID, ORAL
     Route: 048
     Dates: start: 20040907, end: 20041010
  5. FUROSEMIDE [Concomitant]
  6. CITALOPRAM [Concomitant]
  7. WARFARIN SODIUM [Concomitant]
  8. THYROXIN (LEVOTHYROXINE SODIUM) [Concomitant]

REACTIONS (3)
  - ALANINE AMINOTRANSFERASE INCREASED [None]
  - BLOOD ALKALINE PHOSPHATASE INCREASED [None]
  - BLOOD BILIRUBIN INCREASED [None]
